FAERS Safety Report 22269248 (Version 2)
Quarter: 2023Q2

REPORT INFORMATION
  Report Type: Report from Study
  Country: DK (occurrence: None)
  Receive Date: 20230501
  Receipt Date: 20230505
  Transmission Date: 20230721
  Serious: Yes (Hospitalization)
  Sender: FDA-Public Use
  Company Number: DK-ROCHE-3340189

PATIENT
  Age: 57 Year
  Sex: Male

DRUGS (2)
  1. ATEZOLIZUMAB [Suspect]
     Active Substance: ATEZOLIZUMAB
     Indication: Bladder cancer recurrent
     Dosage: EVERY THREE WEEKS FOR UP TO 13 MONTHS AS PER PROTOCOL
     Route: 041
     Dates: start: 20230206
  2. ATEZOLIZUMAB [Suspect]
     Active Substance: ATEZOLIZUMAB
     Dosage: MOST RECENT DOSE ADMINISTERED ON 20/MAR/2023 AND 12/APR/2023,  EVERY THREE WEEKS FOR UP TO 13 MONTHS
     Route: 065
     Dates: start: 20230227

REACTIONS (1)
  - Urinary tract infection [Not Recovered/Not Resolved]

NARRATIVE: CASE EVENT DATE: 20230420
